FAERS Safety Report 14498568 (Version 1)
Quarter: 2018Q1

REPORT INFORMATION
  Report Type: Spontaneous
  Country: GB (occurrence: GB)
  Receive Date: 20180207
  Receipt Date: 20180207
  Transmission Date: 20180509
  Serious: Yes (Other)
  Sender: FDA-Public Use
  Company Number: GB-PFIZER INC-2018049249

PATIENT
  Age: 11 Year
  Sex: Female
  Weight: 75.65 kg

DRUGS (1)
  1. DEPO-PROVERA [Suspect]
     Active Substance: MEDROXYPROGESTERONE ACETATE
     Dosage: UNK
     Dates: start: 2003, end: 2004

REACTIONS (4)
  - Infertility female [Not Recovered/Not Resolved]
  - Drug administered to patient of inappropriate age [Unknown]
  - Amenorrhoea [Not Recovered/Not Resolved]
  - Premature menopause [Not Recovered/Not Resolved]
